FAERS Safety Report 9314879 (Version 1)
Quarter: 2013Q2

REPORT INFORMATION
  Report Type: Spontaneous
  Country: US (occurrence: US)
  Receive Date: 20130529
  Receipt Date: 20130529
  Transmission Date: 20140414
  Serious: Yes (Other)
  Sender: FDA-Public Use
  Company Number: PHHY2013US049789

PATIENT
  Age: 50 Year
  Sex: Female
  Weight: 49.5 kg

DRUGS (16)
  1. XOLAIR [Suspect]
     Indication: ASTHMA
     Dosage: 150 MG, ONCE IN MONTH
     Route: 058
     Dates: start: 20130419
  2. XOLAIR [Suspect]
     Dosage: 150 MG, ONCE IN MONTH
     Route: 058
     Dates: end: 20130514
  3. CLONAZEPAM [Suspect]
     Indication: DEPRESSION
     Dosage: 2 MG
     Route: 048
  4. DULERA [Concomitant]
     Indication: ASTHMA
     Dosage: UNK (1 IN 12 HOURS)
  5. FLONASE [Concomitant]
     Indication: RHINITIS ALLERGIC
     Dosage: 1 DF, QD
     Route: 045
  6. FLONASE [Concomitant]
     Indication: RHINITIS ALLERGIC
  7. PATANASE [Concomitant]
     Indication: RHINITIS ALLERGIC
     Dosage: UNK
     Dates: start: 20110629
  8. CONCERTA [Concomitant]
     Indication: ATTENTION DEFICIT/HYPERACTIVITY DISORDER
     Dosage: 54 MG
     Route: 048
  9. ANTABUSE [Concomitant]
     Indication: DRUG ABUSE
     Dosage: 250 MG
     Route: 048
  10. ANTABUSE [Concomitant]
     Indication: ALCOHOL ABUSE
  11. LUNESTA [Concomitant]
     Indication: SLEEP DISORDER
     Dosage: 3 MG
     Route: 048
  12. BUSPAR [Concomitant]
     Indication: DEPRESSION
     Dosage: 30 MG
     Route: 048
  13. SPIRIVA [Concomitant]
     Indication: ASTHMA
     Dosage: 18 UG
     Dates: start: 20121024
  14. BENADRYL [Concomitant]
     Indication: HYPERSENSITIVITY
     Dosage: UNK (AS REQUIRED)
     Route: 048
     Dates: start: 20130325
  15. BENADRYL [Concomitant]
     Dosage: 0.1 %
     Dates: start: 20130403
  16. CLARITIN [Concomitant]
     Indication: RHINITIS ALLERGIC
     Dosage: 10 MG
     Route: 048

REACTIONS (1)
  - Bronchospasm [Recovered/Resolved]
